FAERS Safety Report 4744219-9 (Version None)
Quarter: 2005Q3

REPORT INFORMATION
  Report Type: 
  Country: None (occurrence: None)
  Receive Date: 20050812
  Receipt Date: 20050801
  Transmission Date: 20060218
  Serious: Yes (Hospitalization, Other)
  Sender: FDA-Public Use
  Company Number: PHBS2005MX11088

PATIENT
  Age: 53 Year
  Sex: Female

DRUGS (3)
  1. ZOMETA [Suspect]
     Indication: METASTASES TO BONE
     Dosage: 4 MG
     Route: 042
     Dates: start: 20050714
  2. METOPROLOL [Concomitant]
     Indication: HYPERTENSION
     Dosage: 200 MG/D
     Route: 048
  3. ANTRACICLINAS [Concomitant]
     Indication: BREAST CANCER
     Route: 042
     Dates: start: 20050318

REACTIONS (7)
  - ASTHENIA [None]
  - BLOOD GLUCOSE INCREASED [None]
  - BLOOD POTASSIUM DECREASED [None]
  - HYPOCALCAEMIA [None]
  - PARAESTHESIA [None]
  - TETANY [None]
  - TROUSSEAU'S SYNDROME [None]
